FAERS Safety Report 9782348 (Version 1)
Quarter: 2013Q4

REPORT INFORMATION
  Report Type: Spontaneous
  Country: GB (occurrence: GB)
  Receive Date: 20131226
  Receipt Date: 20131226
  Transmission Date: 20140711
  Serious: Yes (Life-Threatening, Other)
  Sender: FDA-Public Use
  Company Number: GB-DRREDDYS-GER/UKI/13/0036645

PATIENT
  Age: 45 Year
  Sex: Male

DRUGS (2)
  1. TERBINAFINE [Suspect]
     Indication: TRICHOPHYTOSIS
     Route: 048
     Dates: start: 20131022, end: 20131216
  2. INSULIN [Concomitant]
     Indication: PRODUCT USED FOR UNKNOWN INDICATION

REACTIONS (3)
  - Blood bilirubin increased [Unknown]
  - Hepatitis [Unknown]
  - Pruritus [Unknown]
